FAERS Safety Report 4618355-1 (Version None)
Quarter: 2005Q1

REPORT INFORMATION
  Report Type: 
  Country: None (occurrence: None)
  Receive Date: 20050324
  Receipt Date: 20050302
  Transmission Date: 20050727
  Serious: Yes (Life-Threatening, Disabling, Other)
  Sender: FDA-Public Use
  Company Number: US-MERCK-0503USA00324

PATIENT
  Age: 55 Year
  Sex: Female
  Weight: 67 kg

DRUGS (9)
  1. ASCORBIC ACID [Concomitant]
     Route: 065
  2. CHONDROITIN SULFATE SODIUM AND GLUCOSAMINE SULFATE [Concomitant]
     Route: 065
  3. VITAMIN E [Concomitant]
     Route: 065
  4. VITAMIN A [Concomitant]
     Route: 065
  5. PYRIDOXINE [Concomitant]
     Route: 065
  6. CENTRUM [Concomitant]
     Route: 065
  7. FOSAMAX [Suspect]
     Indication: OSTEOPOROSIS
     Route: 048
     Dates: end: 20050101
  8. FOSAMAX [Suspect]
     Route: 048
     Dates: start: 20050201, end: 20050201
  9. CALCIUM (UNSPECIFIED) [Concomitant]
     Route: 065

REACTIONS (4)
  - ANAPHYLACTIC SHOCK [None]
  - HYPERSENSITIVITY [None]
  - INCREASED UPPER AIRWAY SECRETION [None]
  - URTICARIA [None]
